FAERS Safety Report 12172719 (Version 1)
Quarter: 2016Q1

REPORT INFORMATION
  Report Type: Spontaneous
  Country: FR (occurrence: FR)
  Receive Date: 20160311
  Receipt Date: 20160311
  Transmission Date: 20160526
  Serious: Yes (Hospitalization)
  Sender: FDA-Public Use
  Company Number: FR-ELI_LILLY_AND_COMPANY-FR201602003066

PATIENT
  Age: 69 Year
  Sex: Male

DRUGS (10)
  1. CORTANCYL [Concomitant]
     Active Substance: PREDNISONE
     Dosage: 5 MG, QD
  2. METOJECT [Concomitant]
     Active Substance: METHOTREXATE SODIUM
     Dosage: 15 MG, WEEKLY (1/W)
  3. ULTIBRO [Concomitant]
     Active Substance: GLYCOPYRRONIUM\INDACATEROL
  4. PREVISCAN                          /00261401/ [Concomitant]
     Active Substance: PENTOXIFYLLINE
  5. FLIXOTIDE [Concomitant]
     Active Substance: FLUTICASONE PROPIONATE
     Dosage: 500 UG, QD
  6. FORSTEO [Suspect]
     Active Substance: TERIPARATIDE
     Indication: OSTEOPOROSIS
     Dosage: 20 UG, QD
     Route: 058
     Dates: start: 201508, end: 20160202
  7. TRAMADOL. [Concomitant]
     Active Substance: TRAMADOL
     Dosage: 100 MG, UNK
  8. FORSTEO [Suspect]
     Active Substance: TERIPARATIDE
     Dosage: 20 UG, QD
     Route: 058
  9. DUROGESIC [Concomitant]
     Active Substance: FENTANYL
     Dosage: 12.5 UG, OTHER
  10. XANAX [Concomitant]
     Active Substance: ALPRAZOLAM
     Dosage: 0.5 MG, TID

REACTIONS (4)
  - Bronchitis [Unknown]
  - Accidental overdose [Recovered/Resolved]
  - Respiratory distress [Unknown]
  - Fall [Recovered/Resolved]

NARRATIVE: CASE EVENT DATE: 20160202
